FAERS Safety Report 20578719 (Version 2)
Quarter: 2022Q2

REPORT INFORMATION
  Report Type: Report from Study
  Country: CA (occurrence: CA)
  Receive Date: 20220310
  Receipt Date: 20220411
  Transmission Date: 20220721
  Serious: Yes (Hospitalization, Other)
  Sender: FDA-Public Use
  Company Number: CA-JNJFOC-20220312009

PATIENT
  Age: 77 Year
  Sex: Male

DRUGS (1)
  1. REMICADE [Suspect]
     Active Substance: INFLIXIMAB
     Indication: Colitis ulcerative
     Dosage: EXPIRY DATE: 28-AUG-2024
     Route: 042

REACTIONS (10)
  - Myocardial infarction [Unknown]
  - Infusion related reaction [Unknown]
  - Atrial fibrillation [Unknown]
  - Seizure [Unknown]
  - Blood pressure increased [Unknown]
  - Gait disturbance [Unknown]
  - SARS-CoV-2 test positive [Unknown]
  - Hearing aid user [Unknown]
  - COVID-19 [Unknown]
  - Erythema [Unknown]

NARRATIVE: CASE EVENT DATE: 20220101
